FAERS Safety Report 4485845-4 (Version None)
Quarter: 2004Q3

REPORT INFORMATION
  Report Type: 
  Country: None (occurrence: None)
  Receive Date: 20040921
  Receipt Date: 20040213
  Transmission Date: 20050211
  Serious: Yes (Hospitalization)
  Sender: FDA-Public Use
  Company Number: 163-20785-03100065

PATIENT
  Age: 66 Year
  Sex: Male

DRUGS (17)
  1. THALOMID [Suspect]
     Indication: MULTIPLE MYELOMA
     Dosage: 200 MG, DAILY, ORAL
     Route: 048
     Dates: start: 20030801
  2. VELCADE [Suspect]
     Indication: MULTIPLE MYELOMA
     Dosage: ORAL
     Route: 048
     Dates: start: 20030801, end: 20030815
  3. DEXAMETHASONE [Suspect]
     Indication: MULTIPLE MYELOMA
     Dosage: 40 MG, DAILY, ORAL
     Route: 048
     Dates: start: 20030826, end: 20030830
  4. CISPLATIN [Suspect]
     Dosage: 7.5 MG/M2, DAILY, INTRAVENOUS
     Route: 042
     Dates: start: 20030826, end: 20030830
  5. ADRIAMYCIN PFS [Suspect]
     Indication: MULTIPLE MYELOMA
     Dosage: 7.5 MG/M2, DAILY, INTRAVENOUS
     Route: 042
     Dates: start: 20030826, end: 20030830
  6. CYCLOPHOSPHAMIDE [Suspect]
     Indication: MULTIPLE MYELOMA
     Dosage: 300 MG/M2, DAILY, INTRAVENOUS
     Route: 042
     Dates: start: 20030826, end: 20030830
  7. ETOPOSIDE [Suspect]
     Indication: MULTIPLE MYELOMA
     Dosage: 30 MG/M2, DAILY, INTRAVENOUS
     Route: 042
     Dates: start: 20030826, end: 20030830
  8. ATENOLOL [Concomitant]
  9. LOVENOX (HEPARIN-F-REACTION, SODIUM SALT) [Concomitant]
  10. MICRO-K (POTASSIUM CHLORIDE) [Concomitant]
  11. G-CSF (GRANULOCYTE COLONY STIMULATING FACTOR) [Concomitant]
  12. TEQUIN [Concomitant]
  13. ACYCLOVIR [Concomitant]
  14. VORICONAZOLE (VORICONAZOLE) [Concomitant]
  15. PEPCID [Concomitant]
  16. FOLIC ACID [Concomitant]
  17. MULTIVITAINS (MULTIVITAMINS) [Concomitant]

REACTIONS (8)
  - AMMONIA INCREASED [None]
  - ANAEMIA [None]
  - ASTHENIA [None]
  - DYSPNOEA [None]
  - HYPOAESTHESIA ORAL [None]
  - INTERNATIONAL NORMALISED RATIO INCREASED [None]
  - MENTAL STATUS CHANGES [None]
  - PYREXIA [None]
